FAERS Safety Report 9311633 (Version 2)
Quarter: 2013Q2

REPORT INFORMATION
  Report Type: Spontaneous
  Country: JP (occurrence: JP)
  Receive Date: 20130528
  Receipt Date: 20130613
  Transmission Date: 20140414
  Serious: Yes (Death)
  Sender: FDA-Public Use
  Company Number: JP-OTSUKA-JP-2013-11891

PATIENT
  Age: 48 Year
  Sex: Male

DRUGS (2)
  1. BUSULFEX [Suspect]
     Dosage: UNK
     Route: 041
  2. CYCLOPHOSPHAMIDE [Concomitant]
     Dosage: UNK
     Route: 042

REACTIONS (1)
  - Death [Fatal]
